FAERS Safety Report 14918546 (Version 1)
Quarter: 2018Q2

REPORT INFORMATION
  Report Type: Spontaneous
  Country: US (occurrence: US)
  Receive Date: 20180502
  Receipt Date: 20180502
  Transmission Date: 20180711
  Serious: Yes (Hospitalization)
  Sender: FDA-Public Use
  Company Number: None

PATIENT
  Age: 80 Year
  Sex: Female

DRUGS (3)
  1. CITALOPRAM [Suspect]
     Active Substance: CITALOPRAM HYDROBROMIDE
     Indication: DEPRESSION
     Route: 048
     Dates: start: 20180202, end: 20180226
  2. LOSARTAN. [Concomitant]
     Active Substance: LOSARTAN
     Dates: start: 20160201, end: 20180209
  3. MELOXICAM. [Concomitant]
     Active Substance: MELOXICAM
     Dates: start: 20161101, end: 20180209

REACTIONS (2)
  - Systemic lupus erythematosus [None]
  - Stevens-Johnson syndrome [None]

NARRATIVE: CASE EVENT DATE: 20180312
